FAERS Safety Report 20169227 (Version 6)
Quarter: 2022Q2

REPORT INFORMATION
  Report Type: Report from Study
  Country: FR (occurrence: None)
  Receive Date: 20211210
  Receipt Date: 20220419
  Transmission Date: 20220721
  Serious: Yes (Hospitalization)
  Sender: FDA-Public Use
  Company Number: FR-ROCHE-2971110

PATIENT
  Age: 73 Year
  Sex: Female

DRUGS (21)
  1. ATEZOLIZUMAB [Suspect]
     Active Substance: ATEZOLIZUMAB
     Indication: Non-small cell lung cancer
     Dosage: EVERY 1 CYCLE(S) DAY 1 OF CYCLE OF 21 DAYS
     Route: 041
     Dates: start: 20211026, end: 20220310
  2. PEMETREXED [Suspect]
     Active Substance: PEMETREXED
     Indication: Non-small cell lung cancer
     Dosage: EVERY 1 CYCLE(S) DAY 1 OF CYCLE OF 21 DAYS
     Route: 042
     Dates: start: 20211026
  3. PEMETREXED [Suspect]
     Active Substance: PEMETREXED
     Dosage: LAST DOSE ADMINISTERED ON 17/FEB/2022
     Route: 042
     Dates: end: 20220106
  4. PEMETREXED [Suspect]
     Active Substance: PEMETREXED
     Dosage: EVERY 1 CYCLE(S) DAY 1 OF CYCLES OF 21 DAYS
     Route: 042
     Dates: end: 20220127
  5. CISPLATIN [Suspect]
     Active Substance: CISPLATIN
     Indication: Non-small cell lung cancer
     Dosage: EVERY 1 CYCLE(S) DAY 1 OF CYCLE OF 21 DAYS
     Route: 042
     Dates: start: 20211026, end: 20211026
  6. CARBOPLATIN [Suspect]
     Active Substance: CARBOPLATIN
     Indication: Non-small cell lung cancer
     Dosage: DAY1 OF CYCLE OF 21 DAYS
     Route: 042
     Dates: start: 20211125
  7. CARBOPLATIN [Suspect]
     Active Substance: CARBOPLATIN
     Dosage: DAY1 OF CYCLE OF 21 DAYS
     Route: 042
     Dates: end: 20220106
  8. HYDROCHLOROTHIAZIDE [Concomitant]
     Active Substance: HYDROCHLOROTHIAZIDE
     Indication: Hypertension
     Route: 048
     Dates: end: 20211103
  9. BISOPROLOL FUMARATE\PERINDOPRIL ARGININE [Concomitant]
     Active Substance: BISOPROLOL FUMARATE\PERINDOPRIL ARGININE
     Indication: Hypertension
     Route: 048
  10. BUDESONIDE\FORMOTEROL [Concomitant]
     Active Substance: BUDESONIDE\FORMOTEROL
     Indication: Chronic obstructive pulmonary disease
     Route: 055
  11. KARDEGIC [Concomitant]
     Active Substance: ASPIRIN DL-LYSINE
     Route: 048
  12. ESOMEPRAZOLE MAGNESIUM [Concomitant]
     Active Substance: ESOMEPRAZOLE MAGNESIUM
     Indication: Dyspepsia
     Route: 048
  13. XANAX [Concomitant]
     Active Substance: ALPRAZOLAM
     Indication: Anxiety
     Route: 048
  14. XANAX [Concomitant]
     Active Substance: ALPRAZOLAM
     Route: 048
  15. IMOVANE [Concomitant]
     Active Substance: ZOPICLONE
     Indication: Anxiety
     Route: 048
  16. ACETAMINOPHEN [Concomitant]
     Active Substance: ACETAMINOPHEN
     Indication: Pleuritic pain
     Route: 048
     Dates: start: 20211125
  17. SKENAN [Concomitant]
     Active Substance: MORPHINE SULFATE
     Indication: Pleuritic pain
     Route: 048
     Dates: start: 20211125
  18. SKENAN [Concomitant]
     Active Substance: MORPHINE SULFATE
     Route: 048
     Dates: start: 20211216
  19. MORPHINE SULFATE [Concomitant]
     Active Substance: MORPHINE SULFATE
     Indication: Pleuritic pain
     Route: 048
     Dates: start: 20211125
  20. NALOXEGOL OXALATE [Concomitant]
     Active Substance: NALOXEGOL OXALATE
     Indication: Constipation
     Route: 048
     Dates: start: 20220106
  21. ZOPICLONE [Concomitant]
     Active Substance: ZOPICLONE
     Indication: Insomnia
     Route: 048
     Dates: start: 20220106

REACTIONS (4)
  - General physical health deterioration [Recovered/Resolved]
  - Asthenia [Recovered/Resolved]
  - Gastrointestinal disorder [Recovered/Resolved]
  - Confusional state [Not Recovered/Not Resolved]

NARRATIVE: CASE EVENT DATE: 20211101
